FAERS Safety Report 17763961 (Version 1)
Quarter: 2020Q2

REPORT INFORMATION
  Report Type: Report from Study
  Country: None (occurrence: US)
  Receive Date: 20200510
  Receipt Date: 20200510
  Transmission Date: 20200714
  Serious: Yes (Other)
  Sender: FDA-Public Use
  Company Number: US-ABBVIE-20K-163-3395354-00

PATIENT
  Age: 71 Year
  Sex: Female

DRUGS (1)
  1. CREON [Suspect]
     Active Substance: PANCRELIPASE AMYLASE\PANCRELIPASE LIPASE\PANCRELIPASE PROTEASE
     Indication: DIARRHOEA
     Route: 048
     Dates: start: 20200430, end: 20200503

REACTIONS (2)
  - Eye swelling [Unknown]
  - Swelling [Unknown]

NARRATIVE: CASE EVENT DATE: 20200430
